FAERS Safety Report 6332027-7 (Version None)
Quarter: 2009Q3

REPORT INFORMATION
  Report Type: 
  Country: None (occurrence: None)
  Receive Date: 20090828
  Receipt Date: 20090820
  Transmission Date: 20100115
  Serious: Yes (Hospitalization, Other)
  Sender: FDA-Public Use
  Company Number: US-ASTRAZENECA-2008UW27484

PATIENT
  Age: 33 Year
  Sex: Female
  Weight: 77.6 kg

DRUGS (7)
  1. SEROQUEL [Suspect]
     Indication: BIPOLAR I DISORDER
     Dosage: 100 MG- 400 MG
     Route: 048
     Dates: start: 20060724, end: 20070622
  2. SEROQUEL [Suspect]
     Indication: DEPRESSION
     Dosage: 100 MG- 400 MG
     Route: 048
     Dates: start: 20060724, end: 20070622
  3. SEROQUEL [Suspect]
     Indication: SLEEP DISORDER
     Dosage: 100 MG- 400 MG
     Route: 048
     Dates: start: 20060724, end: 20070622
  4. ABILIFY [Concomitant]
  5. GEODON [Concomitant]
  6. ZYPREXA [Concomitant]
  7. SYMBYAX [Concomitant]

REACTIONS (7)
  - ANKLE FRACTURE [None]
  - DIABETES MELLITUS [None]
  - GALLBLADDER DISORDER [None]
  - HEART VALVE INCOMPETENCE [None]
  - PANCREATITIS [None]
  - PITUITARY TUMOUR [None]
  - SARCOIDOSIS [None]
